FAERS Safety Report 8593046-3 (Version None)
Quarter: 2012Q3

REPORT INFORMATION
  Report Type: 
  Country: None (occurrence: None)
  Receive Date: 20120814
  Receipt Date: 20120807
  Transmission Date: 20120928
  Serious: Yes (Other)
  Sender: FDA-Public Use
  Company Number: US-GLAXOSMITHKLINE-A0988638A

PATIENT
  Age: 45 Year
  Sex: Male

DRUGS (5)
  1. INHALER [Concomitant]
  2. FLUTICASONE PROPIONATE [Suspect]
     Indication: ASTHMA
     Route: 055
     Dates: start: 20040101
  3. ZYRTEC [Concomitant]
  4. SINGULAIR [Concomitant]
  5. FLOVENT [Suspect]
     Indication: ASTHMA
     Dosage: 2PUFF TWICE PER DAY
     Route: 055
     Dates: start: 20090101

REACTIONS (5)
  - DRUG INEFFECTIVE [None]
  - ASTHMA [None]
  - MALAISE [None]
  - DYSPNOEA [None]
  - CHOKING SENSATION [None]
